FAERS Safety Report 8616166-3 (Version None)
Quarter: 2012Q3

REPORT INFORMATION
  Report Type: 
  Country: None (occurrence: None)
  Receive Date: 20120823
  Receipt Date: 20120815
  Transmission Date: 20120928
  Serious: Yes (Hospitalization, Disabling, Other)
  Sender: FDA-Public Use
  Company Number: US-009507513-1206USA04689

PATIENT

DRUGS (3)
  1. FOSAMAX [Suspect]
     Indication: OSTEOPENIA
  2. BONIVA [Suspect]
  3. FOSAMAX [Suspect]
     Indication: OSTEOPOROSIS
     Dosage: 70 MG,QW
     Route: 048
     Dates: start: 19990101, end: 20110301

REACTIONS (9)
  - LOW TURNOVER OSTEOPATHY [None]
  - FEMUR FRACTURE [None]
  - OSTEOPOROSIS [None]
  - FALL [None]
  - STRESS FRACTURE [None]
  - DRUG HYPERSENSITIVITY [None]
  - HEART RATE IRREGULAR [None]
  - DENTAL IMPLANTATION [None]
  - HYPERSENSITIVITY [None]
